FAERS Safety Report 24980118 (Version 1)
Quarter: 2025Q1

REPORT INFORMATION
  Report Type: Report from Study
  Country: US (occurrence: US)
  Receive Date: 20250218
  Receipt Date: 20250218
  Transmission Date: 20250409
  Serious: Yes (Hospitalization)
  Sender: AUROBINDO
  Company Number: US-AUROBINDO-AUR-APL-2025-008261

PATIENT
  Age: 69 Year
  Sex: Female

DRUGS (11)
  1. DULOXETINE [Suspect]
     Active Substance: DULOXETINE
     Indication: Bipolar I disorder
     Route: 065
  2. DULOXETINE [Suspect]
     Active Substance: DULOXETINE
     Indication: Back pain
  3. TRAZODONE [Suspect]
     Active Substance: TRAZODONE HYDROCHLORIDE
     Indication: Bipolar I disorder
     Route: 065
  4. VALPROIC ACID [Suspect]
     Active Substance: VALPROIC ACID
     Indication: Bipolar I disorder
     Dosage: 500 MILLIGRAM, TWO TIMES A DAY
     Route: 065
  5. VALPROIC ACID [Suspect]
     Active Substance: VALPROIC ACID
     Route: 065
  6. VALPROIC ACID [Suspect]
     Active Substance: VALPROIC ACID
     Route: 065
  7. THIOTHIXENE [Suspect]
     Active Substance: THIOTHIXENE
     Indication: Bipolar I disorder
     Route: 065
  8. THIOTHIXENE [Suspect]
     Active Substance: THIOTHIXENE
     Dosage: 2 MILLIGRAM, TWO TIMES A DAY
     Route: 065
  9. THIOTHIXENE [Suspect]
     Active Substance: THIOTHIXENE
     Route: 065
  10. THIOTHIXENE [Suspect]
     Active Substance: THIOTHIXENE
     Route: 065
  11. LORAZEPAM [Concomitant]
     Active Substance: LORAZEPAM
     Indication: Product used for unknown indication
     Dosage: 0.5 MILLIGRAM, TWO TIMES A DAY
     Route: 065

REACTIONS (1)
  - Drug ineffective [Unknown]
